FAERS Safety Report 6108180-7 (Version None)
Quarter: 2009Q1

REPORT INFORMATION
  Report Type: 
  Country: None (occurrence: None)
  Receive Date: 20090304
  Receipt Date: 20080829
  Transmission Date: 20090719
  Serious: Yes (Other)
  Sender: FDA-Public Use
  Company Number: US-001816

PATIENT
  Age: 34 Year
  Sex: Female

DRUGS (2)
  1. ISOVUE-370 [Suspect]
     Indication: ABDOMINAL PAIN
     Dosage: 100ML QD INTRAVENOUS
     Route: 042
     Dates: start: 20080827, end: 20080827
  2. ISOVUE-370 [Suspect]
     Indication: COMPUTERISED TOMOGRAM ABDOMEN
     Dosage: 100ML QD INTRAVENOUS
     Route: 042
     Dates: start: 20080827, end: 20080827

REACTIONS (5)
  - ASTHENIA [None]
  - HYPOTENSION [None]
  - LOSS OF CONSCIOUSNESS [None]
  - NAUSEA [None]
  - VOMITING [None]
